FAERS Safety Report 17892029 (Version 1)
Quarter: 2020Q2

REPORT INFORMATION
  Report Type: Spontaneous
  Country: GB (occurrence: GB)
  Receive Date: 20200612
  Receipt Date: 20200612
  Transmission Date: 20200714
  Serious: Yes (Other)
  Sender: FDA-Public Use
  Company Number: GB-ABBVIE-20P-167-3443089-00

PATIENT
  Age: 87 Year
  Sex: Male
  Weight: 68.03 kg

DRUGS (3)
  1. LEUPRORELINE [Suspect]
     Active Substance: LEUPROLIDE
     Indication: PROSTATIC SPECIFIC ANTIGEN INCREASED
     Dosage: 11.25 MILLIGRAM
     Route: 051
     Dates: start: 20200420, end: 20200420
  2. ASPIRIN. [Concomitant]
     Active Substance: ASPIRIN
     Indication: PRODUCT USED FOR UNKNOWN INDICATION
     Dosage: UNK
  3. SIMVASTATINE [Concomitant]
     Active Substance: SIMVASTATIN
     Indication: PRODUCT USED FOR UNKNOWN INDICATION
     Dosage: UNK

REACTIONS (1)
  - Abdominal abscess [Recovered/Resolved]

NARRATIVE: CASE EVENT DATE: 20200424
